FAERS Safety Report 6139754-5 (Version None)
Quarter: 2009Q2

REPORT INFORMATION
  Report Type: 
  Country: None (occurrence: None)
  Receive Date: 20090401
  Receipt Date: 20090327
  Transmission Date: 20091009
  Serious: Yes (Death)
  Sender: FDA-Public Use
  Company Number: A0727741B

PATIENT
  Sex: Male
  Weight: 51 kg

DRUGS (5)
  1. LAPATINIB [Suspect]
     Dosage: 1500MG PER DAY
     Route: 048
     Dates: start: 20080221
  2. CISPLATIN [Suspect]
     Dosage: 100MGM2 CYCLIC
     Route: 042
     Dates: start: 20080228
  3. RADIATION [Suspect]
     Dosage: 4GY PER DAY
     Route: 061
     Dates: start: 20080228
  4. SIMEPAR [Concomitant]
     Dosage: 3TAB THREE TIMES PER DAY
     Route: 048
     Dates: start: 20080930, end: 20081129
  5. ESSENTIALE FORTE [Concomitant]
     Dosage: 3TAB THREE TIMES PER DAY
     Route: 048
     Dates: start: 20080930, end: 20081129

REACTIONS (12)
  - ACIDOSIS [None]
  - ANURIA [None]
  - INFLAMMATION [None]
  - LEUKOPENIA [None]
  - LOCALISED OEDEMA [None]
  - LUNG INFILTRATION [None]
  - LYMPHOPENIA [None]
  - MULTI-ORGAN FAILURE [None]
  - PURULENCE [None]
  - RESPIRATORY FAILURE [None]
  - SEPSIS [None]
  - THROMBOCYTOPENIA [None]
